FAERS Safety Report 11640952 (Version 1)
Quarter: 2015Q4

REPORT INFORMATION
  Report Type: Spontaneous
  Country: US (occurrence: None)
  Receive Date: 20151016
  Receipt Date: 20151016
  Transmission Date: 20160304
  Serious: Yes (Hospitalization)
  Sender: FDA-Public Use
  Company Number: None

PATIENT
  Age: 60 Year
  Sex: Male
  Weight: 85 kg

DRUGS (8)
  1. ETOPOSIDE (VP-16) [Suspect]
     Active Substance: ETOPOSIDE
     Dates: end: 20150913
  2. LISINOPRIL. [Concomitant]
     Active Substance: LISINOPRIL
  3. DOXORUBICIN HYDROCHLORIDE. [Suspect]
     Active Substance: DOXORUBICIN HYDROCHLORIDE
     Dates: end: 20150913
  4. METHOTREXATE [Suspect]
     Active Substance: METHOTREXATE
     Dates: end: 20151006
  5. RITUXIMAB [Suspect]
     Active Substance: RITUXIMAB
     Dates: end: 20150910
  6. VINCRISTINE SULFATE. [Suspect]
     Active Substance: VINCRISTINE SULFATE
     Dates: end: 20150913
  7. ASPIRIN. [Concomitant]
     Active Substance: ASPIRIN
  8. CYCLOPHOSPHAMIDE. [Suspect]
     Active Substance: CYCLOPHOSPHAMIDE
     Dates: end: 20150914

REACTIONS (10)
  - Unresponsive to stimuli [None]
  - Atypical pneumonia [None]
  - Respiratory failure [None]
  - Atrial fibrillation [None]
  - Renal failure [None]
  - Pulmonary oedema [None]
  - Aspiration [None]
  - Hepatic failure [None]
  - Pleural effusion [None]
  - Circulatory collapse [None]

NARRATIVE: CASE EVENT DATE: 20151013
